FAERS Safety Report 7406760-X (Version None)
Quarter: 2011Q2

REPORT INFORMATION
  Report Type: 
  Country: None (occurrence: None)
  Receive Date: 20110411
  Receipt Date: 20110406
  Transmission Date: 20111010
  Serious: Yes (Other)
  Sender: FDA-Public Use
  Company Number: US-PFIZER INC-2011076600

PATIENT
  Sex: Female
  Weight: 54.422 kg

DRUGS (1)
  1. TOVIAZ [Suspect]
     Indication: HYPERTONIC BLADDER
     Dosage: ONCE DAILY
     Route: 048
     Dates: start: 20110301, end: 20110301

REACTIONS (1)
  - HALLUCINATION [None]
